FAERS Safety Report 24585786 (Version 1)
Quarter: 2024Q4

REPORT INFORMATION
  Report Type: Other
  Country: US (occurrence: US)
  Receive Date: 20241106
  Receipt Date: 20241106
  Transmission Date: 20250115
  Serious: Yes (Hospitalization, Other)
  Sender: EYWA PHARMA INC.
  Company Number: US-Eywa Pharma Inc.-2164595

PATIENT
  Age: 76 Year
  Sex: Female

DRUGS (2)
  1. BACLOFEN [Suspect]
     Active Substance: BACLOFEN
     Indication: Product used for unknown indication
  2. TRAMADOL [Suspect]
     Active Substance: TRAMADOL

REACTIONS (5)
  - Pulseless electrical activity [Recovering/Resolving]
  - Overdose [Unknown]
  - Neurotoxicity [Recovering/Resolving]
  - Coma [Recovering/Resolving]
  - Status epilepticus [Recovering/Resolving]
